FAERS Safety Report 17814902 (Version 1)
Quarter: 2020Q2

REPORT INFORMATION
  Report Type: Report from Study
  Country: GB (occurrence: GB)
  Receive Date: 20200522
  Receipt Date: 20200522
  Transmission Date: 20200714
  Serious: Yes (Hospitalization, Other)
  Sender: FDA-Public Use
  Company Number: GB-JNJFOC-20190533491

PATIENT
  Age: 75 Year
  Sex: Female

DRUGS (8)
  1. STELARA [Suspect]
     Active Substance: USTEKINUMAB
     Indication: CROHN^S DISEASE
     Route: 058
     Dates: start: 20180406
  2. MESALAZINE [Concomitant]
     Active Substance: MESALAMINE
     Route: 065
  3. PREDNISOLONE. [Concomitant]
     Active Substance: PREDNISOLONE
     Route: 065
  4. WARFARIN [Concomitant]
     Active Substance: WARFARIN
     Route: 065
  5. TRAMADOL. [Concomitant]
     Active Substance: TRAMADOL
     Route: 065
  6. PARACETAMOL [Concomitant]
     Active Substance: ACETAMINOPHEN
     Indication: PAIN
     Route: 065
  7. STELARA [Suspect]
     Active Substance: USTEKINUMAB
  8. RANITIDINE. [Concomitant]
     Active Substance: RANITIDINE
     Route: 065

REACTIONS (7)
  - Back pain [Unknown]
  - Stress [Unknown]
  - Memory impairment [Unknown]
  - Hernia [Unknown]
  - Crohn^s disease [Recovering/Resolving]
  - Abdominal pain upper [Unknown]
  - Product dose omission [Unknown]

NARRATIVE: CASE EVENT DATE: 201906
